FAERS Safety Report 8511066 (Version 2)
Quarter: 2012Q4

REPORT INFORMATION
  Report Type: 
  Country: US (occurrence: US)
  Receive Date: 20120413
  Receipt Date: 20121219
  Transmission Date: 20130627
  Serious: Yes (Other)
  Sender: FDA-Public Use
  Company Number: US-ENDO PHARMACEUTICALS INC.-PERC20120061

PATIENT
  Age: 44 None
  Sex: Female
  Weight: 89.89 kg

DRUGS (12)
  1. PERCOCET [Suspect]
     Indication: PAIN
     Dosage: 10MG/325MG
     Route: 048
  2. BACLOFEN [Suspect]
     Indication: MUSCLE SPASMS
     Dosage: UNK
     Route: 048
  3. PRISTIQ [Suspect]
     Indication: DEPRESSION
     Route: 048
  4. XANAX [Suspect]
     Indication: ANXIETY
     Dosage: 0.25 MG
     Route: 048
  5. XANAX [Suspect]
     Indication: HEADACHE
  6. SYNTHROID [Suspect]
     Indication: THYROID DISORDER
  7. NEURONTIN [Suspect]
     Indication: MUSCLE SPASTICITY
  8. NEURONTIN [Suspect]
  9. ADDERALL [Suspect]
     Indication: ANXIETY
     Dosage: 30 MG
  10. BETASERON [Suspect]
     Indication: MULTIPLE SCLEROSIS
  11. TRAMADOL [Suspect]
     Indication: PAIN
     Dosage: UNK
  12. TYLOX [Suspect]
     Indication: PAIN
     Route: 048

REACTIONS (5)
  - Catatonia [Unknown]
  - Detoxification [Unknown]
  - Anxiety [Unknown]
  - Dyspepsia [Unknown]
  - Headache [Unknown]
